FAERS Safety Report 8824025 (Version 1)
Quarter: 2012Q4

REPORT INFORMATION
  Report Type: 
  Country: US (occurrence: US)
  Receive Date: 20121003
  Receipt Date: 20121003
  Transmission Date: 20130627
  Serious: No
  Sender: FDA-Public Use
  Company Number: US-TEVA-361725USA

PATIENT
  Age: 6 Year
  Sex: Male

DRUGS (2)
  1. PROAIR HFA [Suspect]
     Indication: COUGH
     Dosage: Varies, PRN
  2. MOTRIN [Concomitant]

REACTIONS (1)
  - Rash generalised [Not Recovered/Not Resolved]
